FAERS Safety Report 21084596 (Version 1)
Quarter: 2022Q3

REPORT INFORMATION
  Report Type: Spontaneous
  Country: US (occurrence: US)
  Receive Date: 20220714
  Receipt Date: 20220714
  Transmission Date: 20221027
  Serious: No
  Sender: FDA-Public Use
  Company Number: US-JAZZ-202203USGW01590

PATIENT
  Sex: Female
  Weight: 50.794 kg

DRUGS (3)
  1. EPIDIOLEX [Suspect]
     Active Substance: CANNABIDIOL
     Indication: Lennox-Gastaut syndrome
     Dosage: 11.81 MG/KG/DAY, 300 MILLIGRAM, BID
     Route: 048
     Dates: start: 202105
  2. EPIDIOLEX [Suspect]
     Active Substance: CANNABIDIOL
     Dosage: 11.81 MG/KG/DAY, 300 MILLIGRAM, BID
     Route: 048
     Dates: start: 202105
  3. EPIDIOLEX [Suspect]
     Active Substance: CANNABIDIOL
     Dosage: 6 MILLILITER
     Route: 048
     Dates: start: 20220118

REACTIONS (1)
  - Vertigo [Unknown]
